FAERS Safety Report 24533478 (Version 2)
Quarter: 2024Q4

REPORT INFORMATION
  Report Type: Spontaneous
  Country: CA (occurrence: CA)
  Receive Date: 20241022
  Receipt Date: 20241218
  Transmission Date: 20250115
  Serious: Yes (Death, Hospitalization, Other)
  Sender: PFIZER
  Company Number: CA-PFIZER INC-202400073897

PATIENT
  Age: 46 Year
  Sex: Male

DRUGS (2)
  1. RUXIENCE [Suspect]
     Active Substance: RITUXIMAB-PVVR
     Indication: Vasculitis
     Dosage: 1000 MG ON DAY 1 AND DAY 15, EVERY 6 MONTHS (1 DF)
     Route: 042
     Dates: start: 20240705
  2. BENLYSTA [Concomitant]
     Active Substance: BELIMUMAB
     Dosage: 1 DF, EVERY 4 WEEKS

REACTIONS (3)
  - Death [Fatal]
  - Myocardial infarction [Not Recovered/Not Resolved]
  - Off label use [Unknown]

NARRATIVE: CASE EVENT DATE: 20240714
